FAERS Safety Report 7980982-1 (Version None)
Quarter: 2011Q4

REPORT INFORMATION
  Report Type: 
  Country: None (occurrence: None)
  Receive Date: 20111215
  Receipt Date: 20111209
  Transmission Date: 20120403
  Serious: No
  Sender: FDA-Public Use
  Company Number: US-BIOGENIDEC-2011BI009661

PATIENT
  Sex: Female

DRUGS (1)
  1. TYSABRI [Suspect]
     Indication: MULTIPLE SCLEROSIS
     Route: 042
     Dates: start: 20101013

REACTIONS (4)
  - FALL [None]
  - BALANCE DISORDER [None]
  - ROTATOR CUFF SYNDROME [None]
  - MUSCULOSKELETAL PAIN [None]
